FAERS Safety Report 17828695 (Version 1)
Quarter: 2020Q2

REPORT INFORMATION
  Report Type: Spontaneous
  Country: US (occurrence: US)
  Receive Date: 20200527
  Receipt Date: 20200527
  Transmission Date: 20200714
  Serious: Yes (Hospitalization, Other)
  Sender: FDA-Public Use
  Company Number: US-MYLANLABS-2020M1051704

PATIENT
  Age: 88 Year
  Sex: Male

DRUGS (1)
  1. NITROFURANTOIN. [Suspect]
     Active Substance: NITROFURANTOIN
     Indication: PROPHYLAXIS
     Dosage: 100 MILLIGRAM, QD
     Route: 065
     Dates: end: 2008

REACTIONS (3)
  - Interstitial lung disease [Recovering/Resolving]
  - Pulmonary fibrosis [Recovered/Resolved]
  - Chronic respiratory failure [Recovered/Resolved]
